FAERS Safety Report 4599723-3 (Version None)
Quarter: 2005Q1

REPORT INFORMATION
  Report Type: 
  Country: None (occurrence: None)
  Receive Date: 20050307
  Receipt Date: 20050228
  Transmission Date: 20050727
  Serious: Yes (Hospitalization)
  Sender: FDA-Public Use
  Company Number: US-JNJFOC-20050300228

PATIENT
  Age: 64 Year
  Sex: Female

DRUGS (3)
  1. DURAGESIC-100 [Suspect]
     Route: 062
     Dates: start: 20041101
  2. DURAGESIC-100 [Suspect]
     Route: 062
     Dates: start: 20041101
  3. ZOLOFT [Concomitant]
     Indication: DEPRESSION
     Route: 049

REACTIONS (5)
  - ANOREXIA [None]
  - ASTHENIA [None]
  - CONFUSIONAL STATE [None]
  - DRY MOUTH [None]
  - PNEUMONIA STAPHYLOCOCCAL [None]
